FAERS Safety Report 5361789-0 (Version None)
Quarter: 2007Q2

REPORT INFORMATION
  Report Type: 
  Country: None (occurrence: None)
  Receive Date: 20070619
  Receipt Date: 20070607
  Transmission Date: 20071010
  Serious: Yes (Other)
  Sender: FDA-Public Use
  Company Number: US-JNJFOC-20070504746

PATIENT
  Sex: Female
  Weight: 64.86 kg

DRUGS (4)
  1. ULTRAM [Suspect]
     Route: 048
  2. ULTRAM [Suspect]
     Indication: FIBROMYALGIA
     Dosage: 50MG EVERY 4 HOURS AS NEEDED, UP TO 8 TABLETS PER DAY
     Route: 048
  3. SUBOXONE [Concomitant]
     Indication: DRUG DEPENDENCE
     Route: 065
  4. ATIVAN [Concomitant]
     Indication: ANXIETY
     Dosage: AS NEEDED, UP TO 2 TABLETS PER DAY
     Route: 048

REACTIONS (4)
  - ACCIDENT [None]
  - ANALGESIC DRUG LEVEL [None]
  - CONVULSION [None]
  - HYPOGLYCAEMIA [None]
